FAERS Safety Report 9483541 (Version 2)
Quarter: 2013Q3

REPORT INFORMATION
  Report Type: Spontaneous
  Country: US (occurrence: US)
  Receive Date: 20130828
  Receipt Date: 20130828
  Transmission Date: 20140515
  Serious: Yes (Hospitalization)
  Sender: FDA-Public Use
  Company Number: US-AMGEN-KDL273784

PATIENT
  Age: 50 Year
  Sex: Female

DRUGS (2)
  1. ENBREL [Suspect]
     Indication: PSORIASIS
     Dosage: 50 MG, QWK
     Route: 058
     Dates: start: 20080320
  2. UNSPECIFIED STEROIDS [Concomitant]

REACTIONS (5)
  - Asthma [Unknown]
  - Bronchitis [Unknown]
  - Sinusitis [Unknown]
  - Hyperglycaemia [Unknown]
  - Pyrexia [Unknown]
